FAERS Safety Report 8321481-7 (Version None)
Quarter: 2012Q2

REPORT INFORMATION
  Report Type: 
  Country: None (occurrence: None)
  Receive Date: 20120430
  Receipt Date: 20120430
  Transmission Date: 20120825
  Serious: No
  Sender: FDA-Public Use
  Company Number: None

PATIENT
  Sex: Female
  Weight: 49.895 kg

DRUGS (1)
  1. MIRENA [Suspect]
     Indication: CONTRACEPTION
     Dates: start: 20101227, end: 20120327

REACTIONS (12)
  - PARAESTHESIA [None]
  - FEAR [None]
  - HYPOAESTHESIA [None]
  - MOOD SWINGS [None]
  - DIZZINESS [None]
  - DRUG HYPERSENSITIVITY [None]
  - DEPRESSION [None]
  - MIDDLE INSOMNIA [None]
  - NAUSEA [None]
  - VISION BLURRED [None]
  - ANXIETY [None]
  - TREMOR [None]
